FAERS Safety Report 10978172 (Version 2)
Quarter: 2015Q2

REPORT INFORMATION
  Report Type: Report from Study
  Country: LB (occurrence: LB)
  Receive Date: 20150402
  Receipt Date: 20150415
  Transmission Date: 20150821
  Serious: Yes (Hospitalization)
  Sender: FDA-Public Use
  Company Number: PHHO2015LB004769

PATIENT
  Age: 35 Year
  Sex: Male
  Weight: 68.8 kg

DRUGS (3)
  1. PROGRAF [Concomitant]
     Active Substance: TACROLIMUS\TACROLIMUS ANHYDROUS
     Indication: RENAL TRANSPLANT
     Dosage: 720 MG, UNK
     Route: 065
     Dates: start: 20141226
  2. MYFORTIC [Suspect]
     Active Substance: MYCOPHENOLATE SODIUM
     Indication: RENAL TRANSPLANT
     Dosage: 2 MG, UNK
     Route: 065
     Dates: start: 20141224
  3. NO TREATMENT RECEIVED [Suspect]
     Active Substance: UNSPECIFIED INGREDIENT
     Indication: RENAL TRANSPLANT
     Dosage: NO TREATMENT
     Route: 065

REACTIONS (1)
  - Renal artery stenosis [Recovering/Resolving]

NARRATIVE: CASE EVENT DATE: 20150323
